APPROVED DRUG PRODUCT: SUCRALFATE
Active Ingredient: SUCRALFATE
Strength: 1GM
Dosage Form/Route: TABLET;ORAL
Application: A215576 | Product #001 | TE Code: AB
Applicant: AMNEAL PHARMACEUTICALS OF NEW YORK LLC
Approved: Apr 15, 2022 | RLD: No | RS: No | Type: RX